FAERS Safety Report 7328794-6 (Version None)
Quarter: 2011Q1

REPORT INFORMATION
  Report Type: 
  Country: None (occurrence: None)
  Receive Date: 20110303
  Receipt Date: 20110303
  Transmission Date: 20110831
  Serious: Yes (Hospitalization)
  Sender: FDA-Public Use
  Company Number: PHHO2009DE02565

PATIENT
  Sex: Male
  Weight: 73 kg

DRUGS (6)
  1. PLACEBO [Suspect]
     Indication: CARCINOID TUMOUR
     Dosage: PLACEBO
     Dates: start: 20080410
  2. TORSEMIDE [Concomitant]
     Indication: PULMONARY HYPERTENSION
     Dosage: 1.25 MG, QD
     Dates: start: 20080616
  3. SANDOSTATIN LAR [Suspect]
     Dosage: 30 MG, QMO
     Dates: start: 20090101
  4. SANDOSTATIN [Suspect]
     Indication: CARCINOID TUMOUR
     Dosage: 100 UG X 3
     Route: 058
     Dates: start: 20080901
  5. ENALAPRIL MALEATE [Concomitant]
     Indication: PULMONARY HYPERTENSION
     Dosage: 2.5 MG
     Dates: start: 20081028
  6. SANDOSTATIN LAR [Suspect]
     Indication: CARCINOID SYNDROME
     Dosage: 30 MG, UNK
     Route: 048
     Dates: start: 20070101, end: 20090101

REACTIONS (2)
  - SYNCOPE [None]
  - ABDOMINAL PAIN [None]
